FAERS Safety Report 22975875 (Version 4)
Quarter: 2024Q1

REPORT INFORMATION
  Report Type: Other
  Country: DE (occurrence: None)
  Receive Date: 20230925
  Receipt Date: 20240221
  Transmission Date: 20240410
  Serious: Yes (Hospitalization)
  Sender: FDA-Public Use
  Company Number: DE-ROCHE-3405134

PATIENT
  Age: 41 Year
  Sex: Female
  Weight: 61 kg

DRUGS (9)
  1. PERJETA [Suspect]
     Active Substance: PERTUZUMAB
     Indication: Breast cancer
     Dosage: FREQUENCY- PRO, DRUG START DATE - 13/JUL/2023?ON 12/SEP/2023, RECEIVED LAST DOSE (420MG) OF DRUG PRI
     Route: 065
     Dates: start: 20230802
  2. TRASTUZUMAB [Suspect]
     Active Substance: TRASTUZUMAB
     Indication: Breast cancer
     Dosage: PER CYCLE, DRUG START DATE - 13/JUL/2023?ON 12/SEP/2023, RECEIVED LAST DOSE (357MG) OF DRUG PRIOR TO
     Route: 065
     Dates: start: 20230802
  3. CARBOPLATIN [Suspect]
     Active Substance: CARBOPLATIN
     Indication: Breast cancer
     Dosage: PER CYCLE, DRUG START DATE - 13/JUL/2023?ON 12/SEP/2023, RECEIVED LAST DOSE (580MG) OF DRUG PRIOR T
     Route: 065
     Dates: start: 20230713
  4. PACLITAXEL [Suspect]
     Active Substance: PACLITAXEL
     Indication: Breast cancer
     Dosage: WEEKLY, DRUG START DATE - 13/JUL/2023?ON 12/SEP/2023, RECEIVED LAST DOSE (132MG) OF DRUG PRIOR TO EV
     Route: 065
     Dates: start: 20230713
  5. ALDIAMED [Concomitant]
     Route: 048
     Dates: start: 20230720
  6. LOPERAMIDE [Concomitant]
     Active Substance: LOPERAMIDE
     Route: 048
     Dates: start: 20230720
  7. CLOTRIMAZOLE [Concomitant]
     Active Substance: CLOTRIMAZOLE
     Route: 061
     Dates: start: 20230808
  8. ZOFRAN [Concomitant]
     Active Substance: ONDANSETRON HYDROCHLORIDE
     Route: 048
     Dates: start: 202307
  9. MCP [Concomitant]
     Active Substance: METOCLOPRAMIDE HYDROCHLORIDE
     Route: 048
     Dates: start: 20230722

REACTIONS (6)
  - General physical health deterioration [Recovered/Resolved]
  - Diarrhoea [Recovering/Resolving]
  - Stomatitis [Recovering/Resolving]
  - Mucosal inflammation [Not Recovered/Not Resolved]
  - Anaemia [Recovering/Resolving]
  - Dyspnoea [Recovering/Resolving]

NARRATIVE: CASE EVENT DATE: 20230801
